FAERS Safety Report 10167040 (Version 1)
Quarter: 2014Q2

REPORT INFORMATION
  Report Type: Spontaneous
  Country: AU (occurrence: None)
  Receive Date: 20140508
  Receipt Date: 20140508
  Transmission Date: 20141212
  Serious: Yes (Other)
  Sender: FDA-Public Use
  Company Number: 2014AP002785

PATIENT
  Age: 73 Year
  Sex: Male
  Weight: 70 kg

DRUGS (6)
  1. ATORVASTATIN [Suspect]
  2. ASPIRIN [Concomitant]
  3. CAPECITABINE [Suspect]
  4. OXALIPLATIN [Suspect]
  5. PANADOL OSTEO [Suspect]
  6. ZANEXTRA [Suspect]

REACTIONS (4)
  - Loss of control of legs [None]
  - Throat tightness [None]
  - Paraesthesia [None]
  - Wheezing [None]
